FAERS Safety Report 4670774-3 (Version None)
Quarter: 2005Q2

REPORT INFORMATION
  Report Type: 
  Country: None (occurrence: None)
  Receive Date: 20050523
  Receipt Date: 20050422
  Transmission Date: 20051028
  Serious: Yes (Hospitalization)
  Sender: FDA-Public Use
  Company Number: PAR_0043_2005

PATIENT
  Age: 63 Year
  Sex: Male

DRUGS (10)
  1. ISOPTIN [Suspect]
     Indication: ESSENTIAL HYPERTENSION
     Dosage: 1 DF UNK PO
     Route: 048
     Dates: start: 20050108, end: 20050227
  2. SIMVASTATIN [Suspect]
     Indication: ESSENTIAL HYPERTENSION
     Dosage: 40 MG QDAY PO
     Route: 048
     Dates: end: 20050227
  3. CYCLOSPORINE [Suspect]
     Indication: RENAL TRANSPLANT
     Dosage: 160 MG QDAY PO
     Route: 048
     Dates: start: 20050109
  4. MYCOPHENOLATE MOFETIL [Concomitant]
  5. PREDNISOLONE [Concomitant]
  6. LOSARTAN [Concomitant]
  7. AMPHOTERICIN B [Concomitant]
  8. OMEPRAZOLE [Concomitant]
  9. BACTRIM [Concomitant]
  10. FUROSEMIDE [Concomitant]

REACTIONS (2)
  - RENAL FAILURE ACUTE [None]
  - RHABDOMYOLYSIS [None]
